FAERS Safety Report 7884403-9 (Version None)
Quarter: 2011Q4

REPORT INFORMATION
  Report Type: 
  Country: None (occurrence: None)
  Receive Date: 20111102
  Receipt Date: 20110607
  Transmission Date: 20120403
  Serious: No
  Sender: FDA-Public Use
  Company Number: US-ASTRAZENECA-2011SE34873

PATIENT
  Age: 81 Year
  Sex: Male
  Weight: 88.9 kg

DRUGS (12)
  1. CYMBALTA [Concomitant]
  2. ATENOLOL [Concomitant]
  3. FINASTERIDE [Concomitant]
  4. LASIX [Concomitant]
  5. ASPIRIN EC LOW DOSE [Concomitant]
  6. BENADRYL [Concomitant]
  7. IMODIUM [Concomitant]
  8. COZAAR [Concomitant]
  9. FLOMAX [Concomitant]
  10. ZANTAC [Concomitant]
  11. VANDETANIB [Suspect]
     Indication: THYROID CANCER
     Route: 048
     Dates: start: 20110523
  12. POTASSIUM CHLORIDE [Concomitant]

REACTIONS (2)
  - TREMOR [None]
  - RASH [None]
